FAERS Safety Report 24417213 (Version 2)
Quarter: 2024Q4

REPORT INFORMATION
  Report Type: Spontaneous
  Country: DE (occurrence: DE)
  Receive Date: 20241009
  Receipt Date: 20241126
  Transmission Date: 20250115
  Serious: Yes (Hospitalization, Other)
  Sender: FRESENIUS KABI
  Company Number: DE-009507513-2409DEU007345

PATIENT
  Age: 63 Year
  Sex: Male
  Weight: 74 kg

DRUGS (11)
  1. CARBOPLATIN [Suspect]
     Active Substance: CARBOPLATIN
     Indication: Non-small cell lung cancer metastatic
     Dosage: UNK
     Dates: end: 20240624
  2. CARBOPLATIN [Suspect]
     Active Substance: CARBOPLATIN
     Indication: Metastatic bronchial carcinoma
  3. PEMETREXED [Suspect]
     Active Substance: PEMETREXED
     Indication: Non-small cell lung cancer metastatic
     Dosage: UNK UNK, Q3W
     Dates: end: 20240624
  4. PEMETREXED [Suspect]
     Active Substance: PEMETREXED
     Dosage: 960 MILLIGRAM, Q3W
     Dates: start: 20240829, end: 20240829
  5. PEMETREXED [Suspect]
     Active Substance: PEMETREXED
     Dosage: UNK UNK, Q3W
     Dates: start: 20241024
  6. PEMBROLIZUMAB [Suspect]
     Active Substance: PEMBROLIZUMAB
     Indication: Metastatic bronchial carcinoma
     Dosage: 200 MILLIGRAM, Q3W?CYCLE 1?FOA: SOLUTION FOR INJECTION
     Dates: end: 20240205
  7. PEMBROLIZUMAB [Suspect]
     Active Substance: PEMBROLIZUMAB
     Dosage: 200 MILLIGRAM, Q3W?CYCLE 1?FOA: SOLUTION FOR INJECTION
     Dates: start: 20240829, end: 20240829
  8. IPILIMUMAB [Suspect]
     Active Substance: IPILIMUMAB
     Indication: Non-small cell lung cancer metastatic
     Dosage: UNK
     Dates: end: 20240624
  9. IPILIMUMAB [Suspect]
     Active Substance: IPILIMUMAB
     Indication: Metastatic bronchial carcinoma
  10. NIVOLUMAB [Suspect]
     Active Substance: NIVOLUMAB
     Indication: Non-small cell lung cancer metastatic
     Dosage: 360 MILLIGRAM
     Dates: end: 20240624
  11. NIVOLUMAB [Suspect]
     Active Substance: NIVOLUMAB
     Indication: Metastatic bronchial carcinoma

REACTIONS (17)
  - Loss of consciousness [Recovered/Resolved]
  - Immune-mediated dermatitis [Recovered/Resolved]
  - Hospitalisation [Recovered/Resolved]
  - Hypersensitivity [Recovered/Resolved]
  - Hypotension [Recovered/Resolved]
  - Paraesthesia [Recovered/Resolved]
  - Drug interaction [Unknown]
  - Tachycardia [Recovered/Resolved]
  - Emphysema [Unknown]
  - Renal cyst [Unknown]
  - Spinal osteoarthritis [Unknown]
  - Prostatic calcification [Unknown]
  - Enostosis [Unknown]
  - Product use issue [Unknown]
  - Rash [Unknown]
  - Product use issue [Unknown]
  - Rash [Unknown]

NARRATIVE: CASE EVENT DATE: 20240101
